FAERS Safety Report 7611700-4 (Version None)
Quarter: 2011Q3

REPORT INFORMATION
  Report Type: 
  Country: None (occurrence: None)
  Receive Date: 20110715
  Receipt Date: 20110711
  Transmission Date: 20111222
  Serious: Yes (Other)
  Sender: FDA-Public Use
  Company Number: US-MERCK-1011USA01584

PATIENT
  Age: 54 Year
  Sex: Female

DRUGS (8)
  1. FOSAMAX [Suspect]
     Route: 048
     Dates: start: 19990801, end: 20000901
  2. BONIVA [Suspect]
     Indication: OSTEOPOROSIS
     Route: 048
     Dates: start: 20051201, end: 20091003
  3. SYNTHROID [Concomitant]
     Route: 065
  4. VITAMINS (UNSPECIFIED) [Concomitant]
     Route: 065
  5. CALCIUM (UNSPECIFIED) [Concomitant]
     Route: 065
     Dates: start: 19980101
  6. FOSAMAX [Suspect]
     Indication: OSTEOPOROSIS
     Route: 048
     Dates: start: 19980901, end: 19990701
  7. FOSAMAX [Suspect]
     Route: 048
     Dates: start: 20001001, end: 20051101
  8. [THERAPY UNSPECIFIED] [Concomitant]
     Route: 065

REACTIONS (7)
  - IMPAIRED HEALING [None]
  - DEPRESSION [None]
  - TOOTH DISORDER [None]
  - FEMUR FRACTURE [None]
  - PERIODONTAL DISEASE [None]
  - GINGIVAL DISORDER [None]
  - LOW TURNOVER OSTEOPATHY [None]
